FAERS Safety Report 23058072 (Version 4)
Quarter: 2023Q4

REPORT INFORMATION
  Report Type: Report from Study
  Country: CA (occurrence: CA)
  Receive Date: 20231012
  Receipt Date: 20231108
  Transmission Date: 20240110
  Serious: Yes (Hospitalization, Other)
  Sender: FDA-Public Use
  Company Number: CA-KOREA IPSEN Pharma-2023-22992

PATIENT
  Age: 78 Year
  Sex: Male

DRUGS (13)
  1. LANREOTIDE ACETATE [Suspect]
     Active Substance: LANREOTIDE ACETATE
     Indication: Carcinoid syndrome
     Route: 058
     Dates: start: 20230227
  2. CELECOXIB [Concomitant]
     Active Substance: CELECOXIB
     Dosage: 200MG DAILY
  3. AMLODIPINE [Concomitant]
     Active Substance: AMLODIPINE BESYLATE
     Dosage: 5MG DAILY
  4. PERINDOPRIL [Concomitant]
     Active Substance: PERINDOPRIL
     Dosage: 8MG DAILY
  5. MINT-CLONIDINE [Concomitant]
     Dosage: 0.1MG DAILY
  6. ROSUVASTATIN-10 [Concomitant]
     Dosage: 10MG DAILY
  7. VENLAFAXINE HYDROCHLORIDE [Concomitant]
     Active Substance: VENLAFAXINE HYDROCHLORIDE
     Dosage: 150 DAILY
  8. METFORMING FC [Concomitant]
     Dosage: 500MG BID
  9. DEPO-MEDROL [Concomitant]
     Active Substance: METHYLPREDNISOLONE ACETATE
     Dosage: 2ML
  10. LIDOCAINE [Concomitant]
     Active Substance: LIDOCAINE
     Indication: Arthralgia
     Dosage: 40MG/ML INJ
  11. VITAMIN C [Concomitant]
     Active Substance: ASCORBIC ACID
     Dosage: 500MG DAILY
  12. VITAMIN D3 [Concomitant]
     Active Substance: CHOLECALCIFEROL
     Dosage: 1000IU DAILY
  13. TYLENOL [Concomitant]
     Active Substance: ACETAMINOPHEN
     Dosage: PRN

REACTIONS (4)
  - Cellulitis [Unknown]
  - Pyrexia [Unknown]
  - Off label use [Unknown]
  - Asthenia [Not Recovered/Not Resolved]

NARRATIVE: CASE EVENT DATE: 20230901
